FAERS Safety Report 10199650 (Version 2)
Quarter: 2014Q2

REPORT INFORMATION
  Report Type: Spontaneous
  Country: DE (occurrence: DE)
  Receive Date: 20140527
  Receipt Date: 20140527
  Transmission Date: 20141212
  Serious: Yes (Disabling)
  Sender: FDA-Public Use
  Company Number: DE-DSJP-DSE-2014-109056

PATIENT
  Sex: 0

DRUGS (2)
  1. VOTUM PLUS 20 MG / 25 MG [Suspect]
     Indication: HYPERTENSION
     Dosage: 20/25 MG, QD
     Route: 048
     Dates: start: 2011
  2. SYMBICORT [Concomitant]
     Indication: ASTHMA
     Dosage: 80/4.5 ?G, QD
     Dates: start: 2006

REACTIONS (2)
  - Haematuria [Not Recovered/Not Resolved]
  - Nephrosclerosis [Not Recovered/Not Resolved]
